FAERS Safety Report 7751384-8 (Version None)
Quarter: 2011Q3

REPORT INFORMATION
  Report Type: 
  Country: None (occurrence: None)
  Receive Date: 20110914
  Receipt Date: 20110214
  Transmission Date: 20111222
  Serious: No
  Sender: FDA-Public Use
  Company Number: US-BAYER-2011-016061

PATIENT
  Age: 68 Year
  Sex: Female
  Weight: 65.76 kg

DRUGS (2)
  1. ULTRAVIST 150 [Suspect]
     Dosage: 100 ML/MG
     Route: 048
     Dates: start: 20110128
  2. ULTRAVIST 150 [Suspect]
     Indication: COMPUTERISED TOMOGRAM
     Dosage: 100 ML/MG
     Route: 042
     Dates: start: 20110128

REACTIONS (2)
  - URTICARIA [None]
  - RASH MACULAR [None]
